FAERS Safety Report 4919038-0 (Version None)
Quarter: 2006Q1

REPORT INFORMATION
  Report Type: 
  Country: None (occurrence: None)
  Receive Date: 20060222
  Receipt Date: 20020502
  Transmission Date: 20060701
  Serious: Yes (Hospitalization, Disabling, Other)
  Sender: FDA-Public Use
  Company Number: US-MERCK-0205USA00564

PATIENT
  Age: 54 Year
  Sex: Female
  Weight: 84 kg

DRUGS (27)
  1. VIOXX [Suspect]
     Indication: ARTHRITIS
     Route: 048
     Dates: start: 20010401, end: 20020314
  2. VIOXX [Suspect]
     Indication: PLANTAR FASCIITIS
     Route: 048
     Dates: start: 20010401, end: 20020314
  3. LOPID [Concomitant]
     Route: 065
  4. INDERAL [Concomitant]
     Route: 065
  5. ALLEGRA [Concomitant]
     Route: 065
  6. PREMARIN [Concomitant]
     Route: 048
  7. VITAMIN E [Concomitant]
     Route: 065
  8. VITAMINS (UNSPECIFIED) [Concomitant]
     Route: 065
  9. PLAVIX [Concomitant]
     Route: 065
  10. ZESTRIL [Concomitant]
     Route: 065
  11. METFORMIN [Concomitant]
     Route: 065
  12. FOLIC ACID [Concomitant]
     Route: 065
  13. MOBIC [Concomitant]
     Route: 065
  14. WELLBUTRIN [Concomitant]
     Route: 065
  15. LISINOPRIL [Concomitant]
     Route: 065
  16. GLYBURIDE [Concomitant]
     Route: 065
  17. FLONASE [Concomitant]
     Route: 065
  18. ACYCLOVIR [Concomitant]
     Route: 065
  19. PREMARIN [Concomitant]
     Route: 065
  20. GEMFIBROZIL [Concomitant]
     Route: 065
  21. ZYRTEC [Concomitant]
     Route: 065
  22. DIPHENHYDRAMINE HYDROCHLORIDE [Concomitant]
     Route: 065
  23. ZOLOFT [Concomitant]
     Route: 065
  24. HYDROCORTISONE ACETATE [Concomitant]
     Route: 065
  25. SODIUM CHLORIDE [Concomitant]
     Route: 065
  26. DESONIDE [Concomitant]
     Route: 065
  27. AMMONIUM LACTATE [Concomitant]
     Route: 065

REACTIONS (32)
  - ABASIA [None]
  - ACUTE CORONARY SYNDROME [None]
  - ATRIAL FIBRILLATION [None]
  - BLADDER DISORDER [None]
  - BLOOD PRESSURE INCREASED [None]
  - CEREBROVASCULAR ACCIDENT [None]
  - CHEST PAIN [None]
  - COGNITIVE DISORDER [None]
  - CONVERSION DISORDER [None]
  - CORONARY ARTERY DISEASE [None]
  - DERMATITIS [None]
  - DIABETES MELLITUS NON-INSULIN-DEPENDENT [None]
  - DYSPHASIA [None]
  - DYSPNOEA [None]
  - FALL [None]
  - GASTROOESOPHAGEAL REFLUX DISEASE [None]
  - GOITRE [None]
  - HAEMATOCHEZIA [None]
  - HEMIPARESIS [None]
  - HOT FLUSH [None]
  - HYPERTENSION [None]
  - HYPOTHYROIDISM [None]
  - INFECTION [None]
  - ISCHAEMIC STROKE [None]
  - LACUNAR INFARCTION [None]
  - MASS [None]
  - MIGRAINE [None]
  - PERIPHERAL VASCULAR DISORDER [None]
  - SARCOIDOSIS [None]
  - SINUS DISORDER [None]
  - THYROID DISORDER [None]
  - TRANSIENT ISCHAEMIC ATTACK [None]
